FAERS Safety Report 4591074-6 (Version None)
Quarter: 2005Q1

REPORT INFORMATION
  Report Type: 
  Country: None (occurrence: None)
  Receive Date: 20050225
  Receipt Date: 20050211
  Transmission Date: 20050727
  Serious: Yes (Other)
  Sender: FDA-Public Use
  Company Number: 200510447EU

PATIENT
  Age: 20 Year
  Sex: Female

DRUGS (2)
  1. FLAGYL [Suspect]
     Indication: VAGINAL INFECTION
     Route: 048
  2. INTRAUTERINE CONTRACEPTIVE DEVICE [Suspect]
     Indication: CONTRACEPTION

REACTIONS (3)
  - DRUG EXPOSURE DURING PREGNANCY [None]
  - DRUG INTERACTION [None]
  - PREGNANCY WITH CONTRACEPTIVE DEVICE [None]
